FAERS Safety Report 14506421 (Version 2)
Quarter: 2019Q3

REPORT INFORMATION
  Report Type: Spontaneous
  Country: FR (occurrence: FR)
  Receive Date: 20180208
  Receipt Date: 20190830
  Transmission Date: 20191004
  Serious: Yes (Other)
  Sender: FDA-Public Use
  Company Number: FR-009507513-1802FRA002482

PATIENT
  Sex: Female

DRUGS (6)
  1. FLUTIFORM [Suspect]
     Active Substance: FLUTICASONE PROPIONATE\FORMOTEROL FUMARATE
     Dosage: MATERNAL DOSE: 250 UG, QD
     Route: 064
  2. XOLAIR [Suspect]
     Active Substance: OMALIZUMAB
     Dosage: MATERNAL DOSE: UNKNOWN
     Route: 064
  3. SOLUPRED (PREDNISOLONE SODIUM METAZOATE) [Suspect]
     Active Substance: PREDNISOLONE SODIUM METAZOATE
     Dosage: MATERNAL DOSE: 40 MG, QD
     Route: 064
  4. SINGULAIR [Suspect]
     Active Substance: MONTELUKAST SODIUM
     Dosage: MATERNAL DOSE: 10 MG, QD
     Route: 064
  5. XOLAIR [Suspect]
     Active Substance: OMALIZUMAB
     Dosage: MATERNAL DOSE: 1 DF, EVERY 4 WEEKS
     Route: 064
  6. INORIAL [Suspect]
     Active Substance: BILASTINE
     Dosage: MATERNAL DOSE: UNKNOWN
     Route: 064

REACTIONS (2)
  - Premature baby [Unknown]
  - Foetal exposure during pregnancy [Unknown]
